FAERS Safety Report 4423627-X (Version None)
Quarter: 2004Q3

REPORT INFORMATION
  Report Type: 
  Country: None (occurrence: None)
  Receive Date: 20040805
  Receipt Date: 20040723
  Transmission Date: 20050211
  Serious: Yes (Other)
  Sender: FDA-Public Use
  Company Number: GB-JNJFOC-20040706515

PATIENT
  Sex: Male

DRUGS (3)
  1. SPORANOX [Suspect]
     Indication: ONYCHOMYCOSIS
     Dosage: ORAL
     Route: 048
     Dates: start: 20040609, end: 20040612
  2. DOVOBET CALCIPOTRIOL [Concomitant]
  3. SYNALAR (FLUOCINOLONE ACETONIDE) [Concomitant]

REACTIONS (5)
  - DIZZINESS [None]
  - HEADACHE [None]
  - HYPOAESTHESIA [None]
  - NAUSEA [None]
  - PALPITATIONS [None]
